FAERS Safety Report 6896711-9 (Version None)
Quarter: 2010Q3

REPORT INFORMATION
  Report Type: 
  Country: None (occurrence: None)
  Receive Date: 20100802
  Receipt Date: 20070202
  Transmission Date: 20110219
  Serious: No
  Sender: FDA-Public Use
  Company Number: US-PFIZER INC-2006149539

PATIENT
  Sex: Female
  Weight: 68 kg

DRUGS (10)
  1. LYRICA [Suspect]
     Indication: NEURALGIA
     Route: 048
     Dates: start: 20061129, end: 20061130
  2. LYRICA [Suspect]
     Indication: HYPOAESTHESIA
  3. LYRICA [Suspect]
  4. TENORMIN [Concomitant]
     Route: 048
  5. PRINIVIL [Concomitant]
     Route: 048
  6. RANITIDINE [Concomitant]
     Route: 048
  7. AMITRIPTYLINE HYDROCHLORIDE [Concomitant]
     Route: 048
  8. PRAVACHOL [Concomitant]
     Route: 048
  9. LORAZEPAM [Concomitant]
  10. ULTRACET [Concomitant]
     Dosage: EVERY 12 HOURS AS NEEDED

REACTIONS (4)
  - BRONCHOSPASM [None]
  - CYSTITIS [None]
  - DIARRHOEA [None]
  - MUSCLE SPASMS [None]
